FAERS Safety Report 19894578 (Version 3)
Quarter: 2022Q1

REPORT INFORMATION
  Report Type: Report from Study
  Country: US (occurrence: US)
  Receive Date: 20210928
  Receipt Date: 20220106
  Transmission Date: 20220423
  Serious: Yes (Hospitalization, Other)
  Sender: FDA-Public Use
  Company Number: NVSC2021US219035

PATIENT
  Age: 59 Year
  Sex: Female

DRUGS (1)
  1. ENTRESTO [Suspect]
     Active Substance: SACUBITRIL\VALSARTAN
     Indication: Cardiac failure
     Dosage: 2 DF, BID(24/26 MG)
     Route: 048
     Dates: start: 201808

REACTIONS (7)
  - Diabetes mellitus [Recovering/Resolving]
  - Uterine haemorrhage [Recovered/Resolved]
  - Hypotension [Unknown]
  - Arthritis [Recovered/Resolved]
  - Inflammation [Unknown]
  - Overweight [Unknown]
  - Weight decreased [Unknown]

NARRATIVE: CASE EVENT DATE: 20200801
